FAERS Safety Report 6642428-5 (Version None)
Quarter: 2010Q1

REPORT INFORMATION
  Report Type: 
  Country: None (occurrence: None)
  Receive Date: 20100319
  Receipt Date: 20100312
  Transmission Date: 20100710
  Serious: Yes (Death)
  Sender: FDA-Public Use
  Company Number: US-ROCHE-691782

PATIENT
  Sex: Male
  Weight: 59.9 kg

DRUGS (1)
  1. CAPECITABINE [Suspect]
     Dosage: FREQUENCY: 02 TABLETS OF 500 MG TWICE DAILY
     Route: 048
     Dates: start: 20091218, end: 20100301

REACTIONS (1)
  - DEATH [None]
